FAERS Safety Report 13396907 (Version 2)
Quarter: 2017Q2

REPORT INFORMATION
  Report Type: Spontaneous
  Country: BR (occurrence: BR)
  Receive Date: 20170403
  Receipt Date: 20170411
  Transmission Date: 20170830
  Serious: Yes (Hospitalization, Other)
  Sender: FDA-Public Use
  Company Number: BR-PFIZER INC-2017134689

PATIENT
  Age: 87 Year
  Sex: Female

DRUGS (4)
  1. ABLOK [Concomitant]
     Active Substance: ATENOLOL
     Dosage: UNK
  2. LIPITOR [Suspect]
     Active Substance: ATORVASTATIN CALCIUM
     Indication: DYSLIPIDAEMIA
     Dosage: 20 MG, DAILY AT NIGHT
     Dates: start: 201612
  3. BENICAR [Concomitant]
     Active Substance: OLMESARTAN MEDOXOMIL
     Dosage: UNK
  4. ANCORON [Concomitant]
     Active Substance: AMIODARONE HYDROCHLORIDE
     Dosage: UNK

REACTIONS (1)
  - Cerebrovascular accident [Recovered/Resolved]

NARRATIVE: CASE EVENT DATE: 20161231
